FAERS Safety Report 22519456 (Version 1)
Quarter: 2023Q2

REPORT INFORMATION
  Report Type: Other
  Country: IN (occurrence: IN)
  Receive Date: 20230605
  Receipt Date: 20230605
  Transmission Date: 20230721
  Serious: Yes (Death, Hospitalization)
  Sender: FDA-Public Use
  Company Number: IN-ALVOGEN-2023091591

PATIENT
  Age: 20 Year
  Sex: Female

DRUGS (1)
  1. DAPSONE [Suspect]
     Active Substance: DAPSONE
     Indication: Product used for unknown indication
     Dosage: UNKNOWN NUMBER OF DAPSONE TABLETS 2 DAYS BACK BEFORE PRESENTATION.

REACTIONS (7)
  - Toxicity to various agents [Fatal]
  - Brain injury [Fatal]
  - Encephalopathy [Fatal]
  - Hydrocephalus [Fatal]
  - Nervous system disorder [Fatal]
  - Anaemia [Fatal]
  - Methaemoglobinaemia [Fatal]
